FAERS Safety Report 7291693-2 (Version None)
Quarter: 2011Q1

REPORT INFORMATION
  Report Type: 
  Country: None (occurrence: None)
  Receive Date: 20110214
  Receipt Date: 20110207
  Transmission Date: 20110831
  Serious: Yes (Hospitalization, Other)
  Sender: FDA-Public Use
  Company Number: US-US-EMD SERONO, INC.-7012090

PATIENT
  Sex: Female
  Weight: 65 kg

DRUGS (12)
  1. VITAMIN B-12 [Concomitant]
  2. IRON [Concomitant]
  3. PREVACID [Concomitant]
  4. REBIF [Suspect]
     Route: 058
     Dates: start: 20110112
  5. NAPROXEN [Concomitant]
     Indication: PREMEDICATION
  6. REBIF [Suspect]
     Indication: MULTIPLE SCLEROSIS
     Route: 058
     Dates: start: 20100607, end: 20100701
  7. OMEPRAZOLE [Concomitant]
     Indication: GASTROOESOPHAGEAL REFLUX DISEASE
     Route: 048
     Dates: start: 20060101
  8. OXYBUTYNIN [Concomitant]
     Indication: HYPERTONIC BLADDER
     Dates: start: 20100201
  9. REBIF [Suspect]
     Route: 058
     Dates: start: 20100701, end: 20101201
  10. TIZANIDINE [Concomitant]
     Indication: MUSCULAR WEAKNESS
     Dates: start: 20100101
  11. TYLENOL [Concomitant]
     Indication: PREMEDICATION
  12. CELEXA [Concomitant]
     Indication: FATIGUE
     Route: 048
     Dates: start: 20010101

REACTIONS (7)
  - SCAR [None]
  - GASTROINTESTINAL STROMAL TUMOUR [None]
  - ABDOMINAL INFECTION [None]
  - GASTROINTESTINAL INFLAMMATION [None]
  - DEHYDRATION [None]
  - CARCINOID TUMOUR OF THE DUODENUM [None]
  - INTESTINAL CYST [None]
